FAERS Safety Report 19450524 (Version 1)
Quarter: 2021Q2

REPORT INFORMATION
  Report Type: Spontaneous
  Country: GB (occurrence: GB)
  Receive Date: 20210622
  Receipt Date: 20210622
  Transmission Date: 20210717
  Serious: Yes (Other)
  Sender: FDA-Public Use
  Company Number: GB-JNJFOC-20210632925

PATIENT
  Age: 10 Year
  Sex: Male

DRUGS (1)
  1. OVEX [Suspect]
     Active Substance: MEBENDAZOLE
     Indication: ILL-DEFINED DISORDER
     Route: 065

REACTIONS (3)
  - Vomiting projectile [Recovered/Resolved]
  - Diarrhoea [Recovered/Resolved]
  - Adverse drug reaction [Recovered/Resolved]

NARRATIVE: CASE EVENT DATE: 20210531
